FAERS Safety Report 25045442 (Version 1)
Quarter: 2025Q1

REPORT INFORMATION
  Report Type: Spontaneous
  Country: US (occurrence: None)
  Receive Date: 20250305
  Receipt Date: 20250305
  Transmission Date: 20250409
  Serious: Yes (Death)
  Sender: FDA-CTU
  Company Number: None

PATIENT
  Age: 66 Year
  Sex: Male

DRUGS (2)
  1. MYCOPHENOLIC ACID [Suspect]
     Active Substance: MYCOPHENOLIC ACID
     Dosage: 1 TABLET  BID ORAL
     Route: 048
     Dates: start: 20240911, end: 20250222
  2. TACROLIMUS [Suspect]
     Active Substance: TACROLIMUS
     Indication: Heart transplant
     Dosage: 1 CAPSULE DAILY ORAL ?
     Route: 048
     Dates: start: 20240911, end: 20250228

REACTIONS (2)
  - Heart transplant rejection [None]
  - Therapy interrupted [None]

NARRATIVE: CASE EVENT DATE: 20250228
